FAERS Safety Report 16461801 (Version 1)
Quarter: 2019Q2

REPORT INFORMATION
  Report Type: Spontaneous
  Country: US (occurrence: US)
  Receive Date: 20190621
  Receipt Date: 20190621
  Transmission Date: 20190711
  Serious: No
  Sender: FDA-Public Use
  Company Number: US-TEVA-2019-US-1063724

PATIENT
  Sex: Female

DRUGS (1)
  1. CLOZAPINE. [Suspect]
     Active Substance: CLOZAPINE
     Indication: SCHIZOPHRENIA
     Dosage: DOSE STRENGTH:  550
     Route: 065
     Dates: start: 201806

REACTIONS (3)
  - Dysphemia [Unknown]
  - Slow speech [Unknown]
  - Muscle spasms [Unknown]
